FAERS Safety Report 9162744 (Version 1)
Quarter: 2013Q1

REPORT INFORMATION
  Report Type: Spontaneous
  Country: US (occurrence: None)
  Receive Date: 20130313
  Receipt Date: 20130313
  Transmission Date: 20140127
  Serious: Yes (Disabling)
  Sender: FDA-Public Use
  Company Number: None

PATIENT
  Age: 31 None
  Sex: Female
  Weight: 64.41 kg

DRUGS (1)
  1. RHOGAM [Suspect]
     Route: 030

REACTIONS (1)
  - Neuralgia [None]
